FAERS Safety Report 10062345 (Version 3)
Quarter: 2016Q2

REPORT INFORMATION
  Report Type: Spontaneous
  Country: US (occurrence: US)
  Receive Date: 20140407
  Receipt Date: 20160615
  Transmission Date: 20160815
  Serious: Yes (Other)
  Sender: FDA-Public Use
  Company Number: US-GLAXOSMITHKLINE-A1064451A

PATIENT
  Sex: Female

DRUGS (3)
  1. BENLYSTA [Suspect]
     Active Substance: BELIMUMAB
     Dosage: 560 MG, UNK
     Route: 042
     Dates: start: 20140220
  2. KEFLEX [Concomitant]
     Active Substance: CEPHALEXIN
     Indication: CUTANEOUS LUPUS ERYTHEMATOSUS
  3. BENLYSTA [Suspect]
     Active Substance: BELIMUMAB
     Indication: SYSTEMIC LUPUS ERYTHEMATOSUS
     Dosage: EVERY 28 DAYS
     Route: 042
     Dates: start: 20140220

REACTIONS (15)
  - Decreased appetite [Unknown]
  - Disturbance in attention [Unknown]
  - Communication disorder [Unknown]
  - Oropharyngeal pain [Unknown]
  - Cold sweat [Unknown]
  - Therapeutic response unexpected [Unknown]
  - Drug dose omission [Unknown]
  - Fatigue [Unknown]
  - Amnesia [Unknown]
  - Mucous membrane disorder [Unknown]
  - Malaise [Recovered/Resolved]
  - Systemic lupus erythematosus [Unknown]
  - Sinus congestion [Unknown]
  - Nasopharyngitis [Unknown]
  - Lethargy [Unknown]
